FAERS Safety Report 15736905 (Version 2)
Quarter: 2020Q2

REPORT INFORMATION
  Report Type: Report from Study
  Country: US (occurrence: US)
  Receive Date: 20181218
  Receipt Date: 20200603
  Transmission Date: 20200713
  Serious: Yes (Hospitalization)
  Sender: FDA-Public Use
  Company Number: US-ACTELION-A-US2018-183157

PATIENT
  Age: 85 Year
  Sex: Female
  Weight: 90.7 kg

DRUGS (9)
  1. MICARDIS [Concomitant]
     Active Substance: TELMISARTAN
     Dosage: 20 MG, UNK
     Dates: start: 20160618
  2. NEXIUM [Concomitant]
     Active Substance: ESOMEPRAZOLE MAGNESIUM
     Dosage: 20 MG, UNK
     Dates: start: 20160616
  3. PREDNISONE. [Concomitant]
     Active Substance: PREDNISONE
     Dosage: 5 MG/ML
     Dates: start: 20160624
  4. TADALAFIL. [Concomitant]
     Active Substance: TADALAFIL
     Dosage: UNK
     Dates: start: 20181204
  5. SINGULAIR [Concomitant]
     Active Substance: MONTELUKAST SODIUM
     Dosage: 10 MG, UNK
  6. OPSUMIT [Suspect]
     Active Substance: MACITENTAN
     Indication: PULMONARY ARTERIAL HYPERTENSION
     Dosage: 10 MG, QD
     Route: 048
     Dates: start: 20171018
  7. ADCIRCA [Concomitant]
     Active Substance: TADALAFIL
     Dosage: 40 MG, QD
  8. ALLEGRA [Concomitant]
     Active Substance: FEXOFENADINE HYDROCHLORIDE
     Dosage: 30 MG, UNK
     Dates: start: 20160623
  9. ASPIRIN. [Concomitant]
     Active Substance: ASPIRIN
     Dosage: 81 MG, UNK
     Dates: start: 20160720

REACTIONS (4)
  - Vertigo [Unknown]
  - Full blood count decreased [Unknown]
  - Iron deficiency [Unknown]
  - Blood iron decreased [Unknown]

NARRATIVE: CASE EVENT DATE: 20181101
